FAERS Safety Report 6312638-5 (Version None)
Quarter: 2009Q3

REPORT INFORMATION
  Report Type: 
  Country: None (occurrence: None)
  Receive Date: 20090814
  Receipt Date: 20090803
  Transmission Date: 20100115
  Serious: Yes (Hospitalization)
  Sender: FDA-Public Use
  Company Number: 2009SP001861

PATIENT
  Age: 95 Year
  Sex: Female

DRUGS (6)
  1. XOPENEX [Suspect]
     Indication: BRONCHITIS
     Dosage: 0.63 MG/3ML;BID;INHALATION,  0.63 MG/3ML;TID;INHALATION
     Route: 055
     Dates: start: 20090702, end: 20090701
  2. XOPENEX [Suspect]
     Indication: BRONCHITIS
     Dosage: 0.63 MG/3ML;BID;INHALATION,  0.63 MG/3ML;TID;INHALATION
     Route: 055
     Dates: start: 20090706, end: 20090707
  3. Z-PAK [Suspect]
     Indication: BRONCHITIS
     Dates: start: 20090702
  4. ZOCOR [Concomitant]
  5. PAXIL [Concomitant]
  6. ZANTAC [Concomitant]

REACTIONS (6)
  - CONFUSIONAL STATE [None]
  - DRUG HYPERSENSITIVITY [None]
  - DYSPNOEA [None]
  - FEELING ABNORMAL [None]
  - HALLUCINATION [None]
  - THERAPEUTIC PRODUCT INEFFECTIVE [None]
